FAERS Safety Report 6136604-8 (Version None)
Quarter: 2009Q1

REPORT INFORMATION
  Report Type: 
  Country: None (occurrence: None)
  Receive Date: 20090325
  Receipt Date: 20090310
  Transmission Date: 20090719
  Serious: Yes (Hospitalization)
  Sender: FDA-Public Use
  Company Number: DSU-2009-00627

PATIENT
  Sex: Female
  Weight: 74.8435 kg

DRUGS (10)
  1. BENICAR HCT [Suspect]
     Indication: HYPERTENSION
     Dosage: 20/12.5 MG (QD), PER ORAL
     Route: 048
  2. GABAPENTIN [Suspect]
     Indication: CONVULSION
     Dosage: 600 MG (600 MG,QHS), PER ORAL
     Route: 048
  3. IMODIUM A-D EZ COOL MINT(LOPERAMIDE HYDROCHLORIDE)(TABLET)(LOPERAMIDE [Concomitant]
  4. FLEXERIL(CYCLOBENZAPRINE HYDROCHLORIDE) (TABLET) (CYCLOBENZAPRINE HYDR [Concomitant]
  5. DARVOCET(PARACETAMOL, DEXTROPROPDXYPHENE NAPSILATE)(PARACETAMOL, DEXTR [Concomitant]
  6. EXTRA STRENGTH TYLENOL (PARACETAMOL) (TABLET) (PARACETAMOL) [Concomitant]
  7. DILANTIN (PHENYTOIN SODIUM) (TABLET) (PHENYTOIN SODIUM) [Concomitant]
  8. DONNAGEL (ATROPINE SULFATE, ETHANOL, HYOSCINE HYDROBROMIDE, HYOSCYAMIN [Concomitant]
  9. ACIPHEX (RABEPRAZOLE SODIUM) (TABLET)  (RABEPRAZOLE SODIUM) [Concomitant]
  10. BENADRYL (DIPHENHYDRAMINE HYDROCHLORIDE) (TABLET) (DIPHENHYDRAMINE HYD [Concomitant]

REACTIONS (1)
  - PANCREATITIS CHRONIC [None]
